FAERS Safety Report 9746743 (Version 2)
Quarter: 2014Q1

REPORT INFORMATION
  Report Type: Report from Study
  Country: JP (occurrence: JP)
  Receive Date: 20131211
  Receipt Date: 20140116
  Transmission Date: 20141002
  Serious: Yes (Hospitalization)
  Sender: FDA-Public Use
  Company Number: JP-JNJFOC-20131205344

PATIENT
  Age: 73 Year
  Sex: Female
  Weight: 56 kg

DRUGS (10)
  1. SIMPONI [Suspect]
     Indication: RHEUMATOID ARTHRITIS
     Route: 058
     Dates: start: 20130425, end: 20130425
  2. SIMPONI [Suspect]
     Indication: RHEUMATOID ARTHRITIS
     Route: 058
     Dates: start: 20130523, end: 20130523
  3. SIMPONI [Suspect]
     Indication: RHEUMATOID ARTHRITIS
     Route: 058
     Dates: start: 20130718, end: 20130718
  4. SIMPONI [Suspect]
     Indication: RHEUMATOID ARTHRITIS
     Route: 058
     Dates: start: 20130620, end: 20130620
  5. METHOTREXATE [Suspect]
     Indication: RHEUMATOID ARTHRITIS
     Route: 065
     Dates: start: 20130926
  6. METHOTREXATE [Suspect]
     Indication: RHEUMATOID ARTHRITIS
     Route: 065
     Dates: end: 20130808
  7. PREDNISOLONE [Concomitant]
     Indication: RHEUMATOID ARTHRITIS
     Route: 048
     Dates: start: 20130425, end: 20130619
  8. PREDNISOLONE [Concomitant]
     Indication: RHEUMATOID ARTHRITIS
     Route: 048
     Dates: start: 20130620, end: 20130818
  9. PREDNISOLONE [Concomitant]
     Indication: RHEUMATOID ARTHRITIS
     Route: 048
     Dates: start: 20130819
  10. GASTER D [Concomitant]
     Indication: PROPHYLAXIS
     Route: 048

REACTIONS (1)
  - Cellulitis [Recovered/Resolved]
